FAERS Safety Report 9468596 (Version 1)
Quarter: 2013Q3

REPORT INFORMATION
  Report Type: Spontaneous
  Country: US (occurrence: US)
  Receive Date: 20130821
  Receipt Date: 20130821
  Transmission Date: 20140515
  Serious: No
  Sender: FDA-Public Use
  Company Number: US-PFIZER INC-2013239552

PATIENT
  Sex: Male

DRUGS (2)
  1. XANAX [Suspect]
     Dosage: UNK
  2. VICODIN [Suspect]
     Dosage: UNK

REACTIONS (2)
  - Anxiety [Recovered/Resolved]
  - Nervousness [Recovered/Resolved]
